FAERS Safety Report 24762860 (Version 1)
Quarter: 2024Q4

REPORT INFORMATION
  Report Type: Other
  Country: SG (occurrence: SG)
  Receive Date: 20241222
  Receipt Date: 20241222
  Transmission Date: 20250114
  Serious: Yes (Hospitalization, Other)
  Sender: DENTSPLY
  Company Number: SG-DENTSPLY-2024SCDP000354

PATIENT
  Age: 87 Year
  Sex: Male

DRUGS (5)
  1. LIDOCAINE [Suspect]
     Active Substance: LIDOCAINE
     Indication: Sedation
     Dosage: 5 MILLILITER OF 1% LIDOCAINE INJECTION (PFT) WAS INFILTRATED SUBCUTANEOUSLY OVER C2?C4 FACET JOINTS
     Route: 058
  2. LIDOCAINE [Suspect]
     Active Substance: LIDOCAINE
     Indication: Facet joint block
  3. LIDOCAINE [Suspect]
     Active Substance: LIDOCAINE
     Indication: Local anaesthesia
  4. OXYGEN [Concomitant]
     Active Substance: OXYGEN
     Indication: Product used for unknown indication
     Dosage: 5 LITER PER MINUTE (VIA HUDSON FACE MASK)
  5. MIDAZOLAM [Concomitant]
     Active Substance: MIDAZOLAM
     Indication: Sedation
     Dosage: 1 MILLIGRAM
     Route: 042

REACTIONS (7)
  - Quadriplegia [Recovered/Resolved]
  - Hypertension [Recovered/Resolved]
  - Aphonia [Recovered/Resolved]
  - Accidental high spinal anaesthesia [Recovered/Resolved]
  - Respiratory disorder [Recovered/Resolved]
  - Oxygen saturation decreased [Recovered/Resolved]
  - Heart rate increased [Recovered/Resolved]
